FAERS Safety Report 18395127 (Version 1)
Quarter: 2020Q4

REPORT INFORMATION
  Report Type: Spontaneous
  Country: CN (occurrence: CN)
  Receive Date: 20201016
  Receipt Date: 20201016
  Transmission Date: 20210114
  Serious: Yes (Other)
  Sender: FDA-Public Use
  Company Number: CN-BAXTER-2020BAX021033

PATIENT
  Age: 82 Year
  Sex: Male
  Weight: 60 kg

DRUGS (7)
  1. 0.9% SODIUM CHLORIDE INJECTION [Suspect]
     Active Substance: SODIUM CHLORIDE
     Indication: MEDICATION DILUTION
     Dosage: ENDOXAN 800 MG + 0.9% SODIUM CHLORIDE 250 ML
     Route: 041
     Dates: start: 20200228, end: 20200228
  2. 0.9% SODIUM CHLORIDE INJECTION [Suspect]
     Active Substance: SODIUM CHLORIDE
     Dosage: FLUOROURACIL 0.75 G + 0.9% SODIUM CHLORIDE 500 ML
     Route: 041
     Dates: start: 20200228, end: 20200228
  3. CISPLATIN. [Suspect]
     Active Substance: CISPLATIN
     Indication: PROSTATE CANCER
     Dosage: CISPLATIN 80 MG + 0.9% SODIUM CHLORIDE 250 ML
     Route: 041
     Dates: start: 20200228, end: 20200228
  4. ENDOXAN [Suspect]
     Active Substance: CYCLOPHOSPHAMIDE
     Indication: PROSTATE CANCER
     Dosage: ENDOXAN 800 MG + 0.9% SODIUM CHLORIDE 250 ML
     Route: 041
     Dates: start: 20200228, end: 20200228
  5. FLUOROURACIL. [Suspect]
     Active Substance: FLUOROURACIL
     Indication: PROSTATE CANCER
     Dosage: FLUOROURACIL 0.75 G + 0.9% SODIUM CHLORIDE 500 ML
     Route: 041
     Dates: start: 20200228, end: 20200228
  6. 0.9% SODIUM CHLORIDE INJECTION [Suspect]
     Active Substance: SODIUM CHLORIDE
     Dosage: CISPLATIN 80 MG + 0.9% SODIUM CHLORIDE 250 ML
     Route: 041
     Dates: start: 20200228, end: 20200228
  7. RUI BAI [Concomitant]
     Indication: PROPHYLAXIS
     Route: 065
     Dates: start: 20200310

REACTIONS (4)
  - Vomiting [Recovered/Resolved]
  - Myelosuppression [Recovering/Resolving]
  - Constipation [Recovered/Resolved]
  - Nausea [Unknown]

NARRATIVE: CASE EVENT DATE: 20200228
